FAERS Safety Report 9922875 (Version 3)
Quarter: 2014Q2

REPORT INFORMATION
  Report Type: Spontaneous
  Country: JP (occurrence: JP)
  Receive Date: 20140225
  Receipt Date: 20140515
  Transmission Date: 20141212
  Serious: Yes (Other)
  Sender: FDA-Public Use
  Company Number: JP-JNJFOC-20140215497

PATIENT
  Age: 77 Year
  Sex: Female

DRUGS (8)
  1. SOVRIAD [Suspect]
     Indication: CHRONIC HEPATITIS C
     Route: 048
     Dates: start: 20140214, end: 201404
  2. PEGASYS [Suspect]
     Indication: CHRONIC HEPATITIS C
     Dosage: HALF DOSE
     Route: 058
     Dates: start: 20140214, end: 201404
  3. COPEGUS [Suspect]
     Indication: CHRONIC HEPATITIS C
     Route: 048
     Dates: start: 20140214, end: 201404
  4. LENDORMIN [Concomitant]
     Indication: INSOMNIA
     Route: 048
     Dates: start: 201208
  5. URSO [Concomitant]
     Indication: CHRONIC HEPATITIS C
     Route: 048
     Dates: start: 2011
  6. MENATETRENONE [Concomitant]
     Indication: OSTEOPOROSIS
     Route: 048
     Dates: start: 2011
  7. BIOFERMIN [Concomitant]
     Indication: PROPHYLAXIS
     Route: 048
     Dates: start: 201207
  8. THYRADIN [Concomitant]
     Route: 048
     Dates: start: 201302

REACTIONS (4)
  - White blood cell count decreased [Recovered/Resolved]
  - Platelet count decreased [Recovered/Resolved]
  - Neutrophil count decreased [Recovered/Resolved]
  - Haemoglobin decreased [Recovering/Resolving]
